FAERS Safety Report 4847995-X (Version None)
Quarter: 2005Q4

REPORT INFORMATION
  Report Type: 
  Country: None (occurrence: None)
  Receive Date: 20051206
  Receipt Date: 20051116
  Transmission Date: 20060501
  Serious: Yes (Death, Hospitalization, Other)
  Sender: FDA-Public Use
  Company Number: US_0511123840

PATIENT
  Age: 91 Year
  Sex: Female

DRUGS (12)
  1. FORTEO [Suspect]
     Indication: OSTEOPOROSIS
     Dates: start: 20040614, end: 20041017
  2. FORTEO [Suspect]
     Indication: OSTEOPOROSIS
     Dates: end: 20051125
  3. FORTEO PEN, 250MCG/ML (3ML) (FORTEO PEN 250 MCG/ML (3ML)) [Concomitant]
  4. NEXIUM [Concomitant]
  5. CALCIUM CARBONATE (CALCIUM CARBONATE) [Concomitant]
  6. COREG [Concomitant]
  7. ASA (ASPIRIN ACETYLSALICYLIC ACID) [Concomitant]
  8. SULAR [Concomitant]
  9. BUMEX [Concomitant]
  10. LISINOPRIL [Concomitant]
  11. CLONIDINE [Concomitant]
  12. DETROL (TOLTERODINE L-TARTRATE) [Concomitant]

REACTIONS (26)
  - ALANINE AMINOTRANSFERASE INCREASED [None]
  - ASPARTATE AMINOTRANSFERASE INCREASED [None]
  - ASTHENIA [None]
  - BILIARY DILATATION [None]
  - BLOOD ALKALINE PHOSPHATASE INCREASED [None]
  - BLOOD CALCIUM INCREASED [None]
  - CONSTIPATION [None]
  - COORDINATION ABNORMAL [None]
  - DIASTOLIC DYSFUNCTION [None]
  - DIFFICULTY IN WALKING [None]
  - EFFUSION [None]
  - FATIGUE [None]
  - FEAR OF FALLING [None]
  - GASTRITIS [None]
  - HAEMOGLOBIN DECREASED [None]
  - HELICOBACTER GASTRITIS [None]
  - HYDROCHOLECYSTIS [None]
  - HYPONATRAEMIA [None]
  - JAUNDICE [None]
  - METASTASES TO LIVER [None]
  - METASTATIC NEOPLASM [None]
  - OSTEOARTHRITIS [None]
  - PANCREATIC CARCINOMA [None]
  - PHARMACEUTICAL PRODUCT COMPLAINT [None]
  - VENTRICULAR HYPERTROPHY [None]
  - WEIGHT DECREASED [None]
